FAERS Safety Report 6158116-8 (Version None)
Quarter: 2009Q2

REPORT INFORMATION
  Report Type: 
  Country: None (occurrence: None)
  Receive Date: 20090414
  Receipt Date: 20090414
  Transmission Date: 20091009
  Serious: Yes (Life-Threatening)
  Sender: FDA-Public Use
  Company Number: None

PATIENT
  Age: 53 Year
  Sex: Male
  Weight: 73.4827 kg

DRUGS (1)
  1. FENTANYL [Suspect]
     Indication: PAIN
     Dosage: I PATCH EVERY THREE DAYS TRANSDERMAL
     Route: 062
     Dates: start: 20080920, end: 20090413

REACTIONS (2)
  - DEVICE LEAKAGE [None]
  - PRODUCT QUALITY ISSUE [None]
